FAERS Safety Report 25959243 (Version 2)
Quarter: 2025Q4

REPORT INFORMATION
  Report Type: Spontaneous
  Country: US (occurrence: US)
  Receive Date: 20251025
  Receipt Date: 20251028
  Transmission Date: 20260118
  Serious: No
  Sender: HAINAN SHUANGCHENG PHARMACEUTICALS CO., LTD
  Company Number: US-HNSPHARMA-2025MPSPO00335

PATIENT

DRUGS (1)
  1. PACLITAXEL [Suspect]
     Active Substance: PACLITAXEL
     Indication: Product used for unknown indication
     Route: 065

REACTIONS (3)
  - Injury associated with device [Unknown]
  - Product contamination [Unknown]
  - Occupational exposure to product [Unknown]

NARRATIVE: CASE EVENT DATE: 20250909
